FAERS Safety Report 4672874-0 (Version None)
Quarter: 2005Q2

REPORT INFORMATION
  Report Type: 
  Country: None (occurrence: None)
  Receive Date: 20050523
  Receipt Date: 20050509
  Transmission Date: 20051028
  Serious: Yes (Hospitalization, Other)
  Sender: FDA-Public Use
  Company Number: 2005072321

PATIENT
  Age: 68 Year
  Sex: Female
  Weight: 72.5755 kg

DRUGS (8)
  1. SINEQUAN [Suspect]
     Indication: FIBROMYALGIA
     Dosage: 50 MG (50 MG, 1 IN 1 D) ORAL
     Route: 048
  2. CATAPRES [Suspect]
     Indication: HYPERTENSION
  3. ADVIL [Suspect]
     Indication: ILL-DEFINED DISORDER
     Dosage: ORAL
     Route: 048
     Dates: end: 20050401
  4. LOTENSIN [Concomitant]
  5. XANAX [Concomitant]
  6. CELEBREX [Concomitant]
  7. SYNTHROID [Concomitant]
  8. ASPIRIN [Concomitant]

REACTIONS (9)
  - DIABETES MELLITUS [None]
  - DRUG EFFECT DECREASED [None]
  - HYPERTENSION [None]
  - INSOMNIA [None]
  - INTERVERTEBRAL DISC PROTRUSION [None]
  - PRURITUS [None]
  - RASH ERYTHEMATOUS [None]
  - RASH PAPULAR [None]
  - SPINAL COLUMN STENOSIS [None]
